FAERS Safety Report 25814264 (Version 1)
Quarter: 2025Q3

REPORT INFORMATION
  Report Type: Spontaneous
  Country: US (occurrence: US)
  Receive Date: 20250917
  Receipt Date: 20250917
  Transmission Date: 20251021
  Serious: No
  Sender: MYLAN
  Company Number: US-MYLANLABS-2025M1077242

PATIENT
  Age: 66 Year
  Sex: Female
  Weight: 84.82 kg

DRUGS (1)
  1. ESTRADIOL TRANSDERMAL SYSTEM [Suspect]
     Active Substance: ESTRADIOL
     Indication: Migraine
     Dosage: 0.1 MILLIGRAM, QD (TWICE WEEKLY)
     Dates: start: 20250904

REACTIONS (2)
  - Off label use [Unknown]
  - Product adhesion issue [Unknown]

NARRATIVE: CASE EVENT DATE: 20250904
